APPROVED DRUG PRODUCT: SULFACETAMIDE SODIUM
Active Ingredient: SULFACETAMIDE SODIUM
Strength: 10%
Dosage Form/Route: LOTION;TOPICAL
Application: A078668 | Product #001
Applicant: SUN PHARMA CANADA INC
Approved: May 20, 2009 | RLD: No | RS: No | Type: DISCN